FAERS Safety Report 4690614-6 (Version None)
Quarter: 2005Q2

REPORT INFORMATION
  Report Type: 
  Country: None (occurrence: None)
  Receive Date: 20050615
  Receipt Date: 20050608
  Transmission Date: 20051028
  Serious: Yes (Death, Hospitalization)
  Sender: FDA-Public Use
  Company Number: 200511940FR

PATIENT
  Age: 84 Year
  Sex: Female
  Weight: 59 kg

DRUGS (17)
  1. RIFADIN [Suspect]
     Indication: LUNG DISORDER
     Route: 048
     Dates: start: 20050512
  2. RIFADIN [Suspect]
     Indication: TUBERCULOSIS
     Route: 048
     Dates: start: 20050512
  3. FUCIDINE CAP [Suspect]
     Route: 048
     Dates: start: 20050512
  4. LOVENOX [Concomitant]
     Route: 058
  5. LASIX [Concomitant]
  6. PARACETAMOL [Concomitant]
     Dates: start: 20050512
  7. PANTOPRAZOLE SODIUM [Concomitant]
  8. LEVOTHYROX [Concomitant]
     Route: 048
  9. KARDEGIC [Concomitant]
  10. CORDARONE [Concomitant]
  11. SEROPRAM [Concomitant]
  12. PLAVIX [Concomitant]
     Route: 048
  13. FORLAX [Concomitant]
     Route: 048
  14. ZOCOR [Concomitant]
     Route: 048
  15. MORPHINE [Concomitant]
  16. UMULINE [Concomitant]
     Route: 058
  17. FORTUM [Concomitant]
     Dates: start: 20050512

REACTIONS (7)
  - ASPARTATE AMINOTRANSFERASE INCREASED [None]
  - BLOOD ALKALINE PHOSPHATASE INCREASED [None]
  - BLOOD LACTATE DEHYDROGENASE INCREASED [None]
  - CARDIAC FAILURE [None]
  - HAEMOGLOBIN DECREASED [None]
  - HYPERBILIRUBINAEMIA [None]
  - JAUNDICE [None]
